FAERS Safety Report 17285317 (Version 1)
Quarter: 2020Q1

REPORT INFORMATION
  Report Type: Spontaneous
  Country: US (occurrence: US)
  Receive Date: 20200117
  Receipt Date: 20200117
  Transmission Date: 20200409
  Serious: No
  Sender: FDA-Public Use
  Company Number: US-SA-2020SA010716

PATIENT
  Age: 25 Year
  Sex: Female
  Weight: 76.2 kg

DRUGS (1)
  1. CEREZYME [Suspect]
     Active Substance: IMIGLUCERASE
     Indication: GAUCHER^S DISEASE TYPE I
     Dosage: UNK UNK, UNK
     Route: 065

REACTIONS (1)
  - Exposure during pregnancy [Unknown]
